FAERS Safety Report 23024413 (Version 1)
Quarter: 2023Q4

REPORT INFORMATION
  Report Type: Spontaneous
  Country: US (occurrence: US)
  Receive Date: 20231004
  Receipt Date: 20231004
  Transmission Date: 20240109
  Serious: No
  Sender: FDA-Public Use
  Company Number: US-AUROBINDO-AUR-APL-2023-043755

PATIENT
  Age: 58 Year
  Sex: Female

DRUGS (1)
  1. SUMATRIPTAN [Suspect]
     Active Substance: SUMATRIPTAN
     Indication: Migraine
     Dosage: 05 TABLETS A MONTH WHEN REQUIRED
     Route: 065

REACTIONS (1)
  - Dyspnoea [Unknown]

NARRATIVE: CASE EVENT DATE: 20221101
